FAERS Safety Report 18534802 (Version 3)
Quarter: 2020Q4

REPORT INFORMATION
  Report Type: Report from Study
  Country: US (occurrence: US)
  Receive Date: 20201123
  Receipt Date: 20201217
  Transmission Date: 20210114
  Serious: Yes (Hospitalization)
  Sender: FDA-Public Use
  Company Number: US-BIOVITRUM-2020US6116

PATIENT
  Age: 22 Year
  Sex: Female

DRUGS (6)
  1. KINERET [Suspect]
     Active Substance: ANAKINRA
     Indication: STILL^S DISEASE
     Route: 058
     Dates: start: 20201027
  2. OCELLA [Concomitant]
     Active Substance: DROSPIRENONE\ETHINYL ESTRADIOL
  3. METHOTREXATE. [Concomitant]
     Active Substance: METHOTREXATE
  4. IRON SUPPLEMENT [Concomitant]
     Active Substance: IRON
  5. KINERET [Suspect]
     Active Substance: ANAKINRA
     Route: 058
     Dates: start: 20201028, end: 20201112
  6. PREDNISONE. [Concomitant]
     Active Substance: PREDNISONE

REACTIONS (12)
  - Injection site rash [Recovered/Resolved]
  - Dyspnoea [Unknown]
  - Urticaria [Unknown]
  - Influenza like illness [Unknown]
  - Nausea [Unknown]
  - Adverse event [Unknown]
  - Pain [Unknown]
  - Injection site pain [Unknown]
  - Tachycardia [Unknown]
  - Hypersensitivity [Unknown]
  - Pruritus [Unknown]
  - Off label use [Recovered/Resolved]

NARRATIVE: CASE EVENT DATE: 20201027
